FAERS Safety Report 9763046 (Version 1)
Quarter: 2013Q4

REPORT INFORMATION
  Report Type: Spontaneous
  Country: IT (occurrence: IT)
  Receive Date: 20131216
  Receipt Date: 20131216
  Transmission Date: 20140711
  Serious: Yes (Hospitalization)
  Sender: FDA-Public Use
  Company Number: PHHY2013IT145805

PATIENT
  Age: 42 Year
  Sex: Male

DRUGS (2)
  1. LEPONEX [Suspect]
     Indication: SUICIDE ATTEMPT
     Dosage: 25 MG, BID
     Dates: start: 20130501
  2. LEPONEX [Suspect]
     Dosage: 25 MG, UNK (20 UNITS)
     Route: 048
     Dates: start: 20131104, end: 20131104

REACTIONS (3)
  - Aphasia [Recovered/Resolved]
  - Suicide attempt [Recovered/Resolved]
  - Sopor [Recovered/Resolved]
